FAERS Safety Report 21164522 (Version 3)
Quarter: 2024Q2

REPORT INFORMATION
  Report Type: Spontaneous
  Country: CA (occurrence: CA)
  Receive Date: 20220803
  Receipt Date: 20240529
  Transmission Date: 20240716
  Serious: Yes (Hospitalization, Other)
  Sender: FDA-Public Use
  Company Number: CA-ABBVIE-22K-028-4490930-00

PATIENT
  Age: 60 Year
  Sex: Male

DRUGS (17)
  1. DIVALPROEX SODIUM [Interacting]
     Active Substance: DIVALPROEX SODIUM
     Indication: Schizoaffective disorder bipolar type
     Route: 048
  2. ZOPICLONE [Suspect]
     Active Substance: ZOPICLONE
     Indication: Psychotic disorder
     Route: 065
  3. BUSPIRONE [Suspect]
     Active Substance: BUSPIRONE HYDROCHLORIDE
     Indication: Psychotic disorder
     Route: 065
  4. CLOZAPINE [Suspect]
     Active Substance: CLOZAPINE
     Indication: Psychotic disorder
     Route: 065
  5. CLOZAPINE [Suspect]
     Active Substance: CLOZAPINE
     Indication: Psychotic disorder
     Route: 065
  6. CLOZAPINE [Suspect]
     Active Substance: CLOZAPINE
     Indication: Psychotic disorder
     Route: 065
  7. FLUOXETINE [Suspect]
     Active Substance: FLUOXETINE HYDROCHLORIDE
     Indication: Obsessive-compulsive disorder
     Route: 065
  8. FLUOXETINE [Suspect]
     Active Substance: FLUOXETINE HYDROCHLORIDE
     Indication: Obsessive-compulsive disorder
     Route: 065
  9. FLUOXETINE [Suspect]
     Active Substance: FLUOXETINE HYDROCHLORIDE
     Indication: Obsessive-compulsive disorder
     Route: 065
  10. FLUOXETINE [Suspect]
     Active Substance: FLUOXETINE HYDROCHLORIDE
     Indication: Obsessive-compulsive disorder
     Route: 065
  11. OXAZEPAM [Suspect]
     Active Substance: OXAZEPAM
     Indication: Psychotic disorder
     Route: 065
  12. OXAZEPAM [Suspect]
     Active Substance: OXAZEPAM
     Indication: Psychotic disorder
     Route: 065
  13. PROCYCLIDINE [Suspect]
     Active Substance: PROCYCLIDINE
     Indication: Schizoaffective disorder bipolar type
     Route: 065
  14. PROCYCLIDINE [Suspect]
     Active Substance: PROCYCLIDINE
     Indication: Schizoaffective disorder bipolar type
     Route: 065
  15. ZUCLOPENTHIXOL DECANOATE [Suspect]
     Active Substance: ZUCLOPENTHIXOL DECANOATE
     Indication: Schizoaffective disorder bipolar type
     Dosage: QW
     Route: 065
  16. QUETIAPINE [Concomitant]
     Active Substance: QUETIAPINE
     Indication: Product used for unknown indication
     Route: 065
  17. FLUVOXAMINE [Suspect]
     Active Substance: FLUVOXAMINE
     Indication: Psychotic disorder
     Route: 048

REACTIONS (11)
  - Condition aggravated [Recovering/Resolving]
  - Disorientation [Recovering/Resolving]
  - Irritability [Recovering/Resolving]
  - Obesity [Recovering/Resolving]
  - Orthostatic hypotension [Recovering/Resolving]
  - Sedation [Recovering/Resolving]
  - Tardive dyskinesia [Recovering/Resolving]
  - Labelled drug-drug interaction medication error [Unknown]
  - Aggression [Recovering/Resolving]
  - Drug level increased [Recovering/Resolving]
  - Delirium [Recovering/Resolving]
